FAERS Safety Report 9125282 (Version 1)
Quarter: 2013Q1

REPORT INFORMATION
  Report Type: Spontaneous
  Country: US (occurrence: US)
  Receive Date: 20130227
  Receipt Date: 20130227
  Transmission Date: 20140127
  Serious: Yes (Other)
  Sender: FDA-Public Use
  Company Number: PHHY2013US017612

PATIENT
  Age: 67 Year
  Sex: Male

DRUGS (11)
  1. ROSUVASTATIN [Suspect]
     Dosage: 40 MG, DAILY
  2. AMLODIPINE [Interacting]
     Dosage: 10 MG, DAILY
  3. SERTRALINE [Interacting]
     Dosage: 25 MG, EVERY MORNING
  4. SERTRALINE [Interacting]
     Dosage: 50 MG, EVERY MORNING
  5. SERTRALINE [Interacting]
     Dosage: 75 MG, TOTAL DAILY DOSE
  6. DULOXETINE [Interacting]
     Dosage: 60 MG, AT BEDTIME
  7. ALPRAZOLAM [Concomitant]
     Dosage: 0.25 MG, BID
  8. METOPROLOL [Concomitant]
     Dosage: 50 MG, DAILY
  9. HYDROCHLOROTHIAZIDE W/TRIAMTERENE [Concomitant]
  10. METFORMIN [Concomitant]
     Dosage: 500 MG, DAILY
  11. SITAGLIPTIN [Concomitant]
     Dosage: 100 MG, DAILY

REACTIONS (4)
  - Hypogonadism [Unknown]
  - Drug interaction [Unknown]
  - Gynaecomastia [Recovered/Resolved]
  - Breast tenderness [Recovered/Resolved]
